FAERS Safety Report 8465372-X (Version None)
Quarter: 2012Q2

REPORT INFORMATION
  Report Type: 
  Country: None (occurrence: None)
  Receive Date: 20120626
  Receipt Date: 20120621
  Transmission Date: 20120825
  Serious: Yes (Other)
  Sender: FDA-Public Use
  Company Number: DE-SANOFI-AVENTIS-2012SA044623

PATIENT
  Sex: Female

DRUGS (4)
  1. BISOPROLOL FUMARATE [Concomitant]
  2. DABIGATRAN ETEXILATE [Concomitant]
  3. MULTAQ [Suspect]
     Indication: ATRIAL FIBRILLATION
     Route: 048
  4. METOPROLOL TARTRATE [Concomitant]

REACTIONS (4)
  - FORMICATION [None]
  - BLOOD CREATININE INCREASED [None]
  - POLYNEUROPATHY [None]
  - PARAESTHESIA [None]
